FAERS Safety Report 4707453-X (Version None)
Quarter: 2005Q3

REPORT INFORMATION
  Report Type: 
  Country: None (occurrence: None)
  Receive Date: 20050701
  Receipt Date: 20050622
  Transmission Date: 20060218
  Serious: Yes (Hospitalization)
  Sender: FDA-Public Use
  Company Number: 05H-087-0300559-00

PATIENT
  Age: 90 Year
  Sex: Female

DRUGS (2)
  1. AMINOPHYLLIN INJ [Suspect]
     Indication: ASTHMA
     Dosage: 250 MG, INTRAVENOUS
     Route: 042
  2. THEOPHYLLINE [Concomitant]

REACTIONS (5)
  - ATRIAL FIBRILLATION [None]
  - DEPRESSED LEVEL OF CONSCIOUSNESS [None]
  - DRUG TOXICITY [None]
  - EPILEPSY [None]
  - HEART RATE INCREASED [None]
